FAERS Safety Report 8258288-5 (Version None)
Quarter: 2012Q2

REPORT INFORMATION
  Report Type: 
  Country: None (occurrence: None)
  Receive Date: 20120403
  Receipt Date: 20120403
  Transmission Date: 20120825
  Serious: Yes (Other)
  Sender: FDA-Public Use
  Company Number: None

PATIENT
  Sex: Male
  Weight: 72.7 kg

DRUGS (1)
  1. CARBAMENZEPIN ER CAP 300 MG. NOSTRUM NDC# 2933-0004-12 [Suspect]
     Dosage: 300 MG.
     Dates: start: 20111101, end: 20111201

REACTIONS (3)
  - DRUG DISPENSING ERROR [None]
  - LETHARGY [None]
  - MYALGIA [None]
